FAERS Safety Report 10286367 (Version 1)
Quarter: 2014Q3

REPORT INFORMATION
  Report Type: Spontaneous
  Country: GB (occurrence: GB)
  Receive Date: 20140709
  Receipt Date: 20140709
  Transmission Date: 20150326
  Serious: Yes (Hospitalization, Other)
  Sender: FDA-Public Use
  Company Number: PHHY2014GB082800

PATIENT
  Age: 39 Year
  Sex: Female

DRUGS (4)
  1. ANTIBIOTICS [Concomitant]
     Active Substance: UNSPECIFIED INGREDIENT
  2. CLONAZEPAM. [Concomitant]
     Active Substance: CLONAZEPAM
  3. LORAZEPAM. [Suspect]
     Active Substance: LORAZEPAM
     Indication: ABNORMAL BEHAVIOUR
     Dosage: 1 MG - 2 MG, UNK
     Route: 048
     Dates: start: 201303, end: 201304
  4. LORAZEPAM. [Suspect]
     Active Substance: LORAZEPAM
     Indication: ABNORMAL BEHAVIOUR
     Dosage: 2 MG, UNK
     Route: 051
     Dates: start: 201303, end: 201304

REACTIONS (8)
  - Swelling face [Unknown]
  - Somnolence [Unknown]
  - Paranoia [Unknown]
  - Unresponsive to stimuli [Unknown]
  - Movement disorder [Unknown]
  - Rash [Unknown]
  - Abnormal behaviour [Unknown]
  - Drug prescribing error [Unknown]

NARRATIVE: CASE EVENT DATE: 20130305
